FAERS Safety Report 4599544-1 (Version None)
Quarter: 2005Q1

REPORT INFORMATION
  Report Type: 
  Country: None (occurrence: None)
  Receive Date: 20050307
  Receipt Date: 20050303
  Transmission Date: 20050727
  Serious: Yes (Hospitalization)
  Sender: FDA-Public Use
  Company Number: US-GLAXOSMITHKLINE-A0548170A

PATIENT
  Age: 77 Year
  Sex: Female

DRUGS (8)
  1. AVANDIA [Suspect]
     Dosage: 4MG PER DAY
     Route: 048
     Dates: start: 20031101
  2. PREDNISONE [Suspect]
     Indication: DRUG USE FOR UNKNOWN INDICATION
     Dosage: 5MG UNKNOWN
     Route: 048
  3. GLYBURIDE [Concomitant]
     Indication: DRUG USE FOR UNKNOWN INDICATION
  4. LEVOTHROID [Concomitant]
     Indication: DRUG USE FOR UNKNOWN INDICATION
  5. RESTORIL [Concomitant]
     Indication: DRUG USE FOR UNKNOWN INDICATION
  6. LOVASTATIN [Concomitant]
     Indication: DRUG USE FOR UNKNOWN INDICATION
  7. NEURONTIN [Concomitant]
     Indication: DRUG USE FOR UNKNOWN INDICATION
  8. LORTAB [Concomitant]
     Indication: DRUG USE FOR UNKNOWN INDICATION

REACTIONS (6)
  - ABDOMINAL PAIN UPPER [None]
  - CHEST PAIN [None]
  - CONSTIPATION [None]
  - DYSPEPSIA [None]
  - ELECTROCARDIOGRAM CHANGE [None]
  - WEIGHT INCREASED [None]
